FAERS Safety Report 9223512 (Version 1)
Quarter: 2013Q2

REPORT INFORMATION
  Report Type: Spontaneous
  Country: US (occurrence: US)
  Receive Date: 20130410
  Receipt Date: 20130410
  Transmission Date: 20140414
  Serious: Yes (Hospitalization)
  Sender: FDA-Public Use
  Company Number: US-GLAXOSMITHKLINE-A0774072A

PATIENT
  Age: 57 Year
  Sex: Male
  Weight: 84.1 kg

DRUGS (1)
  1. AVANDIA [Suspect]
     Indication: TYPE 2 DIABETES MELLITUS
     Dosage: 8MG PER DAY
     Route: 048
     Dates: start: 2001, end: 200303

REACTIONS (7)
  - Cardiac failure congestive [Recovered/Resolved]
  - Cardiomyopathy [Unknown]
  - Depression [Unknown]
  - Anxiety [Unknown]
  - Tachycardia [Unknown]
  - Peripheral vascular disorder [Unknown]
  - Chest pain [Unknown]
